FAERS Safety Report 6834929-1 (Version None)
Quarter: 2010Q3

REPORT INFORMATION
  Report Type: 
  Country: None (occurrence: None)
  Receive Date: 20100712
  Receipt Date: 20070613
  Transmission Date: 20110219
  Serious: No
  Sender: FDA-Public Use
  Company Number: US-PFIZER INC-2007031579

PATIENT
  Sex: Female
  Weight: 111.1 kg

DRUGS (12)
  1. CHANTIX [Suspect]
     Indication: SMOKING CESSATION THERAPY
     Dosage: FREQUENCY: BID
     Route: 048
     Dates: start: 20070301
  2. METOCLOPRAMIDE [Concomitant]
  3. QUINAPRIL HYDROCHLORIDE [Concomitant]
  4. PREDNISOLONE [Concomitant]
  5. SUDELIX [Concomitant]
  6. POTASSIUM [Concomitant]
  7. LASIX [Concomitant]
  8. REQUIP [Concomitant]
  9. DIFIL G [Concomitant]
  10. NABUMETONE [Concomitant]
  11. THEOPHYLLINE [Concomitant]
  12. DUONEB [Concomitant]

REACTIONS (1)
  - DRUG DOSE OMISSION [None]
